FAERS Safety Report 14279434 (Version 8)
Quarter: 2018Q2

REPORT INFORMATION
  Report Type: Report from Study
  Country: None (occurrence: NL)
  Receive Date: 20171213
  Receipt Date: 20180623
  Transmission Date: 20180711
  Serious: Yes (Hospitalization)
  Sender: FDA-Public Use
  Company Number: NL-ABBVIE-17P-114-1983349-00

PATIENT
  Age: 50 Year
  Sex: Female
  Weight: 83 kg

DRUGS (5)
  1. DUODOPA [Suspect]
     Active Substance: CARBIDOPA\LEVODOPA
     Indication: PRODUCT USED FOR UNKNOWN INDICATION
     Dosage: MORNING DOSE: 12.8, CONTINUOUS DOSE: 2.2, EXTRA DOSE: 1.0
     Route: 050
     Dates: start: 20170508
  2. DUODOPA [Suspect]
     Active Substance: CARBIDOPA\LEVODOPA
     Dosage: MORNING DOSE: DECREASED
     Route: 050
     Dates: start: 2018, end: 2018
  3. DUODOPA [Suspect]
     Active Substance: CARBIDOPA\LEVODOPA
     Dosage: MORNING DOSE: 9.8 CONTINUOUS DOSE: 2.2 EXTRA DOSE: 1.0
     Route: 050
     Dates: start: 2018, end: 2018
  4. DUODOPA [Suspect]
     Active Substance: CARBIDOPA\LEVODOPA
     Dosage: MORNING DOSE: 9.8ML CONTINUOUS DOSE: 2.2ML EXTRA DOSE 2.0 ML
     Route: 050
     Dates: start: 2018, end: 2018
  5. DUODOPA [Suspect]
     Active Substance: CARBIDOPA\LEVODOPA
     Dosage: MORNING DOSE: 12.8 CONTINUOUS DOSE: 2.1 EXTRA DOSE: 1.0
     Route: 050
     Dates: start: 2018, end: 2018

REACTIONS (33)
  - Weight decreased [Not Recovered/Not Resolved]
  - Tremor [Not Recovered/Not Resolved]
  - Respiratory tract infection [Not Recovered/Not Resolved]
  - Abdominal abscess [Recovered/Resolved]
  - Abdominal pain [Recovering/Resolving]
  - Muscle spasms [Not Recovered/Not Resolved]
  - Abscess [Recovered/Resolved]
  - Faeces discoloured [Not Recovered/Not Resolved]
  - Device intolerance [Not Recovered/Not Resolved]
  - Stoma site inflammation [Recovered/Resolved]
  - Stoma site irritation [Recovering/Resolving]
  - Psychomotor hyperactivity [Not Recovered/Not Resolved]
  - Medical device site vesicles [Recovered/Resolved]
  - Stoma site discharge [Recovering/Resolving]
  - Injection site hyperaesthesia [Recovered/Resolved]
  - Wound haemorrhage [Recovered/Resolved]
  - Stoma site induration [Recovered/Resolved]
  - Abdominal pain [Recovered/Resolved]
  - Urine abnormality [Unknown]
  - Tension [Not Recovered/Not Resolved]
  - Stoma site reaction [Recovered/Resolved]
  - Dizziness [Not Recovered/Not Resolved]
  - On and off phenomenon [Not Recovered/Not Resolved]
  - Orthostatic hypotension [Not Recovered/Not Resolved]
  - Stoma site extravasation [Recovered/Resolved]
  - Freezing phenomenon [Not Recovered/Not Resolved]
  - Device colour issue [Unknown]
  - Fear [Recovered/Resolved]
  - Blister rupture [Recovered/Resolved]
  - Abnormal dreams [Not Recovered/Not Resolved]
  - Stoma site pain [Recovering/Resolving]
  - Dyskinesia [Not Recovered/Not Resolved]
  - Stoma site discharge [Recovered/Resolved]

NARRATIVE: CASE EVENT DATE: 2017
